FAERS Safety Report 8126231-5 (Version None)
Quarter: 2012Q1

REPORT INFORMATION
  Report Type: 
  Country: None (occurrence: None)
  Receive Date: 20120209
  Receipt Date: 20120207
  Transmission Date: 20120608
  Serious: Yes (Hospitalization)
  Sender: FDA-Public Use
  Company Number: PHFR2012IE001057

PATIENT
  Sex: Male

DRUGS (2)
  1. CLOZARIL [Suspect]
     Indication: SCHIZOPHRENIA
     Dosage: 150 MG, UNK
     Route: 048
     Dates: start: 20111216
  2. CLOZARIL [Suspect]
     Dosage: 175 MG, UNK
     Route: 048
     Dates: end: 20120201

REACTIONS (1)
  - CARDIAC DISORDER [None]
